FAERS Safety Report 5092234-0 (Version None)
Quarter: 2006Q3

REPORT INFORMATION
  Report Type: 
  Country: None (occurrence: None)
  Receive Date: 20060824
  Receipt Date: 20060814
  Transmission Date: 20061208
  Serious: Yes (Hospitalization)
  Sender: FDA-Public Use
  Company Number: 177718

PATIENT
  Age: 62 Year
  Sex: Male
  Weight: 102.0593 kg

DRUGS (4)
  1. AVONEX [Suspect]
     Indication: MULTIPLE SCLEROSIS
     Dosage: 30 UG;QW;IM
     Route: 030
     Dates: start: 20020101, end: 20060501
  2. SYNTHROID [Concomitant]
  3. MEDICATIONS (NOS) [Concomitant]
  4. ZOCOR [Concomitant]

REACTIONS (8)
  - ASTHENIA [None]
  - DEHYDRATION [None]
  - HYPOTENSION [None]
  - INJECTION SITE BRUISING [None]
  - INJECTION SITE PAIN [None]
  - INJECTION SITE REACTION [None]
  - LIMB INJURY [None]
  - URINARY TRACT INFECTION [None]
